FAERS Safety Report 26151723 (Version 1)
Quarter: 2025Q4

REPORT INFORMATION
  Report Type: Spontaneous
  Country: US (occurrence: None)
  Receive Date: 20251212
  Receipt Date: 20251212
  Transmission Date: 20260118
  Serious: No
  Sender: FDA-CTU
  Company Number: None

PATIENT
  Age: 14 Year
  Sex: Female
  Weight: 51.75 kg

DRUGS (1)
  1. SOFDRA [Suspect]
     Active Substance: SOFPIRONIUM BROMIDE

REACTIONS (1)
  - Vision blurred [None]

NARRATIVE: CASE EVENT DATE: 20251212
